FAERS Safety Report 23195100 (Version 2)
Quarter: 2023Q4

REPORT INFORMATION
  Report Type: Report from Study
  Country: US (occurrence: US)
  Receive Date: 20231117
  Receipt Date: 20231124
  Transmission Date: 20240110
  Serious: Yes (Other)
  Sender: FDA-Public Use
  Company Number: US-ABBVIE-5496114

PATIENT

DRUGS (4)
  1. BOTULINUM TOXIN TYPE A [Suspect]
     Active Substance: BOTULINUM TOXIN TYPE A
     Indication: Migraine
     Dosage: 50 DF (TIME INTERVAL: AS NECESSARY: FORM STRENGTH: 100 DOSAGE FORM)
     Route: 065
     Dates: start: 2013, end: 2013
  2. BOTULINUM TOXIN TYPE A [Suspect]
     Active Substance: BOTULINUM TOXIN TYPE A
     Dosage: 50 DF (TIME INTERVAL: AS NECESSARY: FORM STRENGTH: 100 DOSAGE FORM)
     Route: 065
     Dates: start: 202301, end: 202301
  3. IMITREX [Suspect]
     Active Substance: SUMATRIPTAN SUCCINATE
     Indication: Migraine
     Dosage: UNK
     Route: 065
     Dates: start: 2022, end: 2022
  4. GIANVI [Concomitant]
     Active Substance: DROSPIRENONE\ETHINYL ESTRADIOL
     Indication: Contraception
     Dosage: UNK
     Route: 065

REACTIONS (12)
  - Monoplegia [Not Recovered/Not Resolved]
  - Spinal operation [Unknown]
  - Back pain [Recovering/Resolving]
  - Peripheral swelling [Not Recovered/Not Resolved]
  - Spondylolisthesis [Recovered/Resolved]
  - Nerve injury [Not Recovered/Not Resolved]
  - Neuralgia [Not Recovered/Not Resolved]
  - Drug hypersensitivity [Recovered/Resolved]
  - Swollen tongue [Recovered/Resolved]
  - Gait inability [Not Recovered/Not Resolved]
  - COVID-19 [Not Recovered/Not Resolved]
  - Migraine [Not Recovered/Not Resolved]

NARRATIVE: CASE EVENT DATE: 20220101
